FAERS Safety Report 11157754 (Version 1)
Quarter: 2015Q2

REPORT INFORMATION
  Report Type: Spontaneous
  Country: US (occurrence: None)
  Receive Date: 20150601
  Receipt Date: 20150601
  Transmission Date: 20150821
  Serious: Yes (Life-Threatening, Hospitalization, Other)
  Sender: FDA-Public Use
  Company Number: 1713747-2014-999148

PATIENT
  Age: 44 Year
  Sex: Male
  Weight: 107 kg

DRUGS (13)
  1. COLACE [Concomitant]
     Active Substance: DOCUSATE SODIUM
  2. K-DUR [Concomitant]
     Active Substance: POTASSIUM CHLORIDE
  3. GENTAMICIN. [Concomitant]
     Active Substance: GENTAMICIN
  4. CALCITRIOL. [Concomitant]
     Active Substance: CALCITRIOL
  5. TURNS [Concomitant]
  6. PHENERGAN [Concomitant]
     Active Substance: PROMETHAZINE HYDROCHLORIDE
  7. DELFLEX [Suspect]
     Active Substance: CALCIUM CHLORIDE\DEXTROSE MONOHYDRATE\MAGNESIUM CHLORIDE\SODIUM CHLORIDE\SODIUM LACTATE
     Indication: CHRONIC KIDNEY DISEASE
     Dosage: PERITONEAL DIALYSIS
  8. FOLIC ACID. [Concomitant]
     Active Substance: FOLIC ACID
  9. CYCLER TUBING SET [Concomitant]
  10. NORVASC [Concomitant]
     Active Substance: AMLODIPINE BESYLATE
  11. RENVELA [Concomitant]
     Active Substance: SEVELAMER CARBONATE
  12. MEROPENUM [Concomitant]
     Active Substance: MEROPENEM
  13. LIBERTY CYCLER [Concomitant]
     Active Substance: DEVICE

REACTIONS (4)
  - Small intestinal obstruction [None]
  - Inadequate aseptic technique in use of product [None]
  - Peritonitis [None]
  - Sepsis [None]

NARRATIVE: CASE EVENT DATE: 20140728
